FAERS Safety Report 4758144-0 (Version None)
Quarter: 2005Q3

REPORT INFORMATION
  Report Type: 
  Country: None (occurrence: None)
  Receive Date: 20050831
  Receipt Date: 20050309
  Transmission Date: 20060218
  Serious: Yes (Hospitalization)
  Sender: FDA-Public Use
  Company Number: US-MERCK-0503USA01766

PATIENT
  Age: 59 Year
  Sex: Female
  Weight: 73 kg

DRUGS (10)
  1. VIOXX [Suspect]
     Indication: BACK INJURY
     Route: 048
     Dates: start: 19990101, end: 20040901
  2. PREMARIN [Concomitant]
     Indication: MENOPAUSE
     Route: 065
     Dates: start: 19990101, end: 20040101
  3. AVAPRO [Concomitant]
     Route: 065
     Dates: start: 19990801
  4. [THERAPY UNSPECIFIED] [Concomitant]
     Route: 065
  5. BUSPAR [Concomitant]
     Indication: ANXIETY
     Route: 065
     Dates: start: 20000101
  6. PRILOSEC [Concomitant]
     Indication: GASTRIC DISORDER
     Route: 065
  7. AMBIEN [Concomitant]
     Indication: INSOMNIA
     Route: 065
  8. PRAVACHOL [Concomitant]
     Indication: BLOOD CHOLESTEROL INCREASED
     Route: 065
     Dates: start: 19990101
  9. PROPULSID [Concomitant]
     Indication: GASTRIC DISORDER
     Route: 065
  10. DARVOCET-N 100 [Concomitant]
     Indication: PAIN
     Route: 065
     Dates: start: 20000101

REACTIONS (9)
  - ANHEDONIA [None]
  - DIABETES MELLITUS [None]
  - DYSPEPSIA [None]
  - HEPATITIS B [None]
  - HYPERTENSION [None]
  - LIMB INJURY [None]
  - MYOCARDIAL INFARCTION [None]
  - NEPHROLITHIASIS [None]
  - PAIN [None]
